FAERS Safety Report 5423881-1 (Version None)
Quarter: 2007Q3

REPORT INFORMATION
  Report Type: 
  Country: None (occurrence: None)
  Receive Date: 20070727
  Receipt Date: 20070625
  Transmission Date: 20080115
  Serious: No
  Sender: FDA-Public Use
  Company Number: 264872

PATIENT
  Age: 41 Year
  Sex: Female

DRUGS (3)
  1. LEVEMIR [Suspect]
     Indication: INSULIN-REQUIRING TYPE II DIABETES MELLITUS
     Dosage: 40 IU, QD, SUBCUTANEOUS
     Route: 058
     Dates: start: 20060801
  2. NOVOLOG [Suspect]
     Indication: INSULIN-REQUIRING TYPE II DIABETES MELLITUS
     Dosage: 10-25 IU, BID, SUBCUTANEOUS, 10-21 IU, BID, SUBCUTANEOUS
     Route: 058
     Dates: start: 20060801, end: 20070622
  3. NOVOLOG [Suspect]
     Indication: INSULIN-REQUIRING TYPE II DIABETES MELLITUS
     Dosage: 10-25 IU, BID, SUBCUTANEOUS, 10-21 IU, BID, SUBCUTANEOUS
     Route: 058
     Dates: start: 20070601

REACTIONS (1)
  - WEIGHT INCREASED [None]
